FAERS Safety Report 14648053 (Version 1)
Quarter: 2018Q1

REPORT INFORMATION
  Report Type: Spontaneous
  Country: US (occurrence: US)
  Receive Date: 20180316
  Receipt Date: 20180316
  Transmission Date: 20180509
  Serious: Yes (Other)
  Sender: FDA-Public Use
  Company Number: US-PERRIGO-18US002514

PATIENT
  Age: 4 Year
  Sex: Female
  Weight: 15.87 kg

DRUGS (3)
  1. LICE SHAMPOO [Suspect]
     Active Substance: PIPERONYL BUTOXIDE\PYRETHRUM EXTRACT
     Indication: ACCIDENTAL EXPOSURE TO PRODUCT
     Dosage: SMALL AMOUNT, SINGLE
     Route: 061
     Dates: start: 20180219, end: 20180219
  2. LICE SHAMPOO [Suspect]
     Active Substance: PIPERONYL BUTOXIDE\PYRETHRUM EXTRACT
     Indication: LICE INFESTATION
     Dosage: SMALL AMOUNT, SINGLE
     Route: 061
     Dates: start: 20180212, end: 20180212
  3. LICE SHAMPOO [Suspect]
     Active Substance: PIPERONYL BUTOXIDE\PYRETHRUM EXTRACT
     Dosage: SMALL AMOUNT, SINGLE
     Route: 047
     Dates: start: 20180219, end: 20180219

REACTIONS (5)
  - Chemical burns of eye [Recovered/Resolved]
  - Conjunctivitis [Recovered/Resolved]
  - Eye irritation [Recovered/Resolved]
  - Accidental exposure to product [Recovered/Resolved]
  - Injury corneal [Recovered/Resolved]

NARRATIVE: CASE EVENT DATE: 20180219
